FAERS Safety Report 20603500 (Version 1)
Quarter: 2022Q1

REPORT INFORMATION
  Report Type: Spontaneous
  Country: US (occurrence: None)
  Receive Date: 20220316
  Receipt Date: 20220316
  Transmission Date: 20220423
  Serious: Yes (Death, Hospitalization)
  Sender: FDA-Public Use
  Company Number: None

PATIENT
  Sex: Male
  Weight: 66.3 kg

DRUGS (1)
  1. RITUXIMAB [Suspect]
     Active Substance: RITUXIMAB

REACTIONS (4)
  - COVID-19 [None]
  - Organising pneumonia [None]
  - Acute respiratory distress syndrome [None]
  - Respiratory failure [None]

NARRATIVE: CASE EVENT DATE: 20220201
